FAERS Safety Report 16969023 (Version 1)
Quarter: 2019Q4

REPORT INFORMATION
  Report Type: Spontaneous
  Country: FR (occurrence: FR)
  Receive Date: 20191029
  Receipt Date: 20191029
  Transmission Date: 20200122
  Serious: Yes (Hospitalization, Other)
  Sender: FDA-Public Use
  Company Number: FR-TEVA-2019-FR-1130246

PATIENT
  Age: 16 Year
  Sex: Female

DRUGS (3)
  1. ANTADYS [Suspect]
     Active Substance: FLURBIPROFEN
     Indication: DYSMENORRHOEA
     Route: 048
     Dates: end: 201812
  2. PROFENID [Suspect]
     Active Substance: KETOPROFEN
     Indication: RENAL COLIC
     Route: 042
     Dates: start: 20181206, end: 20181206
  3. DOLIPRANE [Concomitant]
     Active Substance: ACETAMINOPHEN
     Indication: BACK PAIN
     Route: 048
     Dates: start: 201812, end: 20181206

REACTIONS (1)
  - Acute kidney injury [Recovered/Resolved]

NARRATIVE: CASE EVENT DATE: 20181209
